FAERS Safety Report 10622549 (Version 2)
Quarter: 2014Q4

REPORT INFORMATION
  Report Type: Spontaneous
  Country: JP (occurrence: JP)
  Receive Date: 20141203
  Receipt Date: 20141230
  Transmission Date: 20150529
  Serious: Yes (Other)
  Sender: FDA-Public Use
  Company Number: JP-BRISTOL-MYERS SQUIBB COMPANY-21648118

PATIENT

DRUGS (1)
  1. FORXIGA [Suspect]
     Active Substance: DAPAGLIFLOZIN
     Indication: PRODUCT USED FOR UNKNOWN INDICATION
     Dosage: 5MG TABLETS
     Route: 048

REACTIONS (9)
  - Oedema [Unknown]
  - Genital discomfort [Unknown]
  - Pollakiuria [Unknown]
  - Hypoglycaemia [Unknown]
  - Pruritus genital [Unknown]
  - Urinary tract infection [Unknown]
  - Dysuria [Unknown]
  - Lactic acidosis [Unknown]
  - Genital infection [Unknown]
